FAERS Safety Report 8812006 (Version 3)
Quarter: 2012Q4

REPORT INFORMATION
  Report Type: 
  Country: DE (occurrence: DE)
  Receive Date: 20120927
  Receipt Date: 20121106
  Transmission Date: 20130627
  Serious: Yes (Other)
  Sender: FDA-Public Use
  Company Number: DE-JNJFOC-20120909195

PATIENT

DRUGS (14)
  1. TRAMADOL [Suspect]
     Indication: PAIN
     Route: 065
  2. FENTANYL [Suspect]
     Indication: PAIN
     Route: 062
  3. PARACETAMOL [Suspect]
     Route: 065
  4. PARACETAMOL [Suspect]
     Indication: PAIN
     Route: 065
  5. NAPROXEN [Suspect]
     Indication: PAIN
     Route: 065
  6. IBUPROFEN [Suspect]
     Indication: PAIN
     Route: 065
  7. CODEINE [Suspect]
     Indication: PAIN
     Route: 065
  8. METAMIZOL [Suspect]
     Indication: PAIN
     Route: 065
  9. DICLOFENAC [Suspect]
     Indication: PAIN
     Route: 065
  10. PIROXICAM [Suspect]
     Indication: PAIN
     Route: 065
  11. MELOXICAM [Suspect]
     Indication: PAIN
     Route: 065
  12. MORPHINE [Suspect]
     Indication: PAIN
     Route: 065
  13. CELECOXIB [Suspect]
     Indication: PAIN
     Route: 065
  14. ETORICOXIB [Suspect]
     Indication: PAIN
     Route: 065

REACTIONS (10)
  - Cardiovascular disorder [Unknown]
  - Hepatotoxicity [Unknown]
  - Nephropathy toxic [Unknown]
  - Haemarthrosis [Unknown]
  - Gastrointestinal haemorrhage [Unknown]
  - Peptic ulcer [Unknown]
  - Constipation [Unknown]
  - Dependence [Unknown]
  - Sedation [Unknown]
  - Overdose [Unknown]
